FAERS Safety Report 23136165 (Version 1)
Quarter: 2023Q4

REPORT INFORMATION
  Report Type: Report from Study
  Country: US (occurrence: US)
  Receive Date: 20231102
  Receipt Date: 20231102
  Transmission Date: 20240110
  Serious: Yes (Other)
  Sender: FDA-Public Use
  Company Number: US-002147023-NVSC2023US230516

PATIENT
  Sex: Male
  Weight: 80.28 kg

DRUGS (4)
  1. COSENTYX [Suspect]
     Active Substance: SECUKINUMAB
     Indication: Psoriasis
     Dosage: UNK
     Route: 065
  2. COSENTYX [Suspect]
     Active Substance: SECUKINUMAB
     Indication: Psoriatic arthropathy
  3. OTEZLA [Suspect]
     Active Substance: APREMILAST
     Indication: Product used for unknown indication
     Dosage: UNK
     Route: 065
  4. METHOTREXATE [Concomitant]
     Active Substance: METHOTREXATE
     Indication: Psoriasis
     Dosage: UNK
     Route: 065

REACTIONS (11)
  - Psoriatic arthropathy [Unknown]
  - Joint swelling [Unknown]
  - Joint stiffness [Unknown]
  - Musculoskeletal discomfort [Unknown]
  - Arthralgia [Unknown]
  - Osteoarthritis [Unknown]
  - Mood swings [Unknown]
  - Psoriasis [Unknown]
  - Skin plaque [Unknown]
  - Skin discolouration [Unknown]
  - Therapeutic product effect incomplete [Unknown]
